FAERS Safety Report 17269213 (Version 2)
Quarter: 2020Q1

REPORT INFORMATION
  Report Type: Spontaneous
  Country: US (occurrence: US)
  Receive Date: 20200114
  Receipt Date: 20200218
  Transmission Date: 20200409
  Serious: Yes (Other)
  Sender: FDA-Public Use
  Company Number: US-GLAXOSMITHKLINE-US2020GSK005268

PATIENT
  Age: 15 Year
  Sex: Male

DRUGS (3)
  1. LAMOTRIGINE. [Suspect]
     Active Substance: LAMOTRIGINE
     Dosage: 600 MG (EXTENDED RELEASE)
  2. LAMOTRIGINE. [Suspect]
     Active Substance: LAMOTRIGINE
     Indication: GENERALISED TONIC-CLONIC SEIZURE
     Dosage: 200 MG (EXTENDED RELEASE (ER) DAILY)
  3. LAMOTRIGINE. [Suspect]
     Active Substance: LAMOTRIGINE
     Dosage: 800 MG (DAILY)

REACTIONS (14)
  - Hypochromasia [Recovered/Resolved]
  - Microcytosis [Recovered/Resolved]
  - Chest pain [Recovered/Resolved]
  - Symptom recurrence [Recovered/Resolved]
  - Serum ferritin increased [Recovered/Resolved]
  - Cytopenia [Recovered/Resolved]
  - Inflammation [Recovered/Resolved]
  - Anaemia [Unknown]
  - Lung opacity [Unknown]
  - Pyrexia [Recovered/Resolved]
  - Cough [Recovered/Resolved]
  - Overdose [Unknown]
  - Pleural effusion [Recovered/Resolved]
  - Pneumonia [Unknown]
